APPROVED DRUG PRODUCT: AMPHOTERICIN B
Active Ingredient: AMPHOTERICIN B
Strength: 50MG/VIAL
Dosage Form/Route: INJECTABLE, LIPOSOMAL;INJECTION
Application: A212514 | Product #001 | TE Code: AB
Applicant: SUN PHARMA INDUSTRIES LTD
Approved: Dec 14, 2021 | RLD: No | RS: No | Type: RX